FAERS Safety Report 20468383 (Version 1)
Quarter: 2022Q1

REPORT INFORMATION
  Report Type: Spontaneous
  Country: CZ (occurrence: CZ)
  Receive Date: 20220214
  Receipt Date: 20220214
  Transmission Date: 20220424
  Serious: Yes (Other)
  Sender: FDA-Public Use
  Company Number: None

PATIENT
  Age: 48 Year
  Sex: Female

DRUGS (9)
  1. TOPIRAMATE [Suspect]
     Active Substance: TOPIRAMATE
     Indication: Product used for unknown indication
     Dosage: 100 MILLIGRAM DAILY
     Route: 048
  2. PREGABALIN [Suspect]
     Active Substance: PREGABALIN
     Indication: Product used for unknown indication
     Dosage: 100 MILLIGRAM DAILY
     Route: 048
  3. SUMATRIPTAN [Suspect]
     Active Substance: SUMATRIPTAN
     Indication: Migraine
     Dosage: 50 MILLIGRAM DAILY;
     Route: 048
  4. VENLAFAXINE [Suspect]
     Active Substance: VENLAFAXINE HYDROCHLORIDE
     Indication: Migraine
     Dosage: 150 MILLIGRAM DAILY
     Route: 048
  5. FREMANEZUMAB [Suspect]
     Active Substance: FREMANEZUMAB
     Indication: Product used for unknown indication
     Dosage: 100 MILLIGRAM DAILY
     Route: 048
  6. VALPROIC ACID [Suspect]
     Active Substance: VALPROIC ACID
     Indication: Product used for unknown indication
     Dosage: 100 MILLIGRAM DAILY
     Route: 048
  7. IBUPROFEN [Suspect]
     Active Substance: IBUPROFEN
     Indication: Migraine
     Dosage: 400 MILLIGRAM, BID, 8-10 DAYS IN MONTH
  8. VALPROATE [Concomitant]
     Active Substance: VALPROIC ACID
     Indication: Migraine
     Dosage: 400 MG, BID
  9. CINNARIZINE [Concomitant]
     Active Substance: CINNARIZINE
     Indication: Rash
     Dosage: 75 MG, QD

REACTIONS (8)
  - Product use issue [Unknown]
  - Drug ineffective [Unknown]
  - Medication overuse headache [Recovered/Resolved]
  - Drug intolerance [Unknown]
  - Migraine without aura [Recovered/Resolved]
  - Therapeutic product effect incomplete [Unknown]
  - Injection site mass [Recovered/Resolved]
  - Fatigue [Recovered/Resolved]
